FAERS Safety Report 8025869-3 (Version None)
Quarter: 2012Q1

REPORT INFORMATION
  Report Type: 
  Country: None (occurrence: None)
  Receive Date: 20120105
  Receipt Date: 20111228
  Transmission Date: 20120608
  Serious: Yes (Hospitalization)
  Sender: FDA-Public Use
  Company Number: US-BAXTER-2011BH039611

PATIENT
  Age: 62 Year
  Sex: Female

DRUGS (2)
  1. UNSPECIFIED CHEMOTHERAPY [Suspect]
     Indication: SKIN CANCER
     Route: 065
  2. DIANEAL [Suspect]
     Indication: PERITONEAL DIALYSIS
     Route: 033

REACTIONS (3)
  - BLOOD POTASSIUM INCREASED [None]
  - MYOCARDIAL INFARCTION [None]
  - DYSPNOEA [None]
